FAERS Safety Report 4903636-4 (Version None)
Quarter: 2006Q1

REPORT INFORMATION
  Report Type: 
  Country: None (occurrence: None)
  Receive Date: 20060203
  Receipt Date: 20060124
  Transmission Date: 20060701
  Serious: Yes (Hospitalization)
  Sender: FDA-Public Use
  Company Number: 2006BI000178

PATIENT
  Age: 46 Year
  Sex: Female

DRUGS (2)
  1. AVONEX LIQUID [Suspect]
     Indication: MULTIPLE SCLEROSIS
     Dosage: 30 UG;QW;IM
     Route: 030
     Dates: start: 20050829
  2. ESTROGEN PATCH [Concomitant]

REACTIONS (3)
  - HAEMATOMA INFECTION [None]
  - POST PROCEDURAL COMPLICATION [None]
  - RECTOCELE [None]
